FAERS Safety Report 8900292 (Version 2)
Quarter: 2012Q4

REPORT INFORMATION
  Report Type: 
  Country: CZ (occurrence: CZ)
  Receive Date: 20121109
  Receipt Date: 20121111
  Transmission Date: 20130627
  Serious: Yes (Other)
  Sender: FDA-Public Use
  Company Number: PHHY2012CZ102642

PATIENT
  Sex: Male

DRUGS (7)
  1. EXTAVIA [Suspect]
     Indication: MULTIPLE SCLEROSIS
     Dosage: 250 ug/ml, UNK
     Route: 058
  2. IMURAN [Concomitant]
  3. HELICID [Concomitant]
  4. LYRICA [Concomitant]
  5. MYOLASTAN [Concomitant]
  6. SPASMED [Concomitant]
  7. VITACALCIN [Concomitant]

REACTIONS (2)
  - Injection site abscess [Not Recovered/Not Resolved]
  - Abdominal pain [Not Recovered/Not Resolved]
